FAERS Safety Report 18642178 (Version 1)
Quarter: 2020Q4

REPORT INFORMATION
  Report Type: Spontaneous
  Country: FR (occurrence: FR)
  Receive Date: 20201221
  Receipt Date: 20201221
  Transmission Date: 20210114
  Serious: Yes (Other)
  Sender: FDA-Public Use
  Company Number: FR-VISTAPHARM, INC.-VER202012-002145

PATIENT
  Age: 44 Year
  Sex: Female

DRUGS (2)
  1. GABAPENTIN. [Suspect]
     Active Substance: GABAPENTIN
     Indication: NEUROPATHY PERIPHERAL
     Dosage: UNKNOWN
     Route: 065
  2. KETAMINE [Concomitant]
     Active Substance: KETAMINE
     Indication: NEUROPATHY PERIPHERAL
     Dosage: UNKNOWN (TRIMESTRAL INJECTIONS)

REACTIONS (3)
  - Platelet aggregation abnormal [Recovered/Resolved]
  - Platelet function test abnormal [Recovered/Resolved]
  - Mucocutaneous haemorrhage [Recovered/Resolved]
